FAERS Safety Report 24634794 (Version 1)
Quarter: 2024Q4

REPORT INFORMATION
  Report Type: Spontaneous
  Country: US (occurrence: None)
  Receive Date: 20241119
  Receipt Date: 20241119
  Transmission Date: 20250115
  Serious: Yes (Other)
  Sender: ADIENNE PHARMA & BIOTECH
  Company Number: US-ADIENNEP-2024AD000876

PATIENT
  Sex: Female

DRUGS (9)
  1. THIOTEPA [Suspect]
     Active Substance: THIOTEPA
     Indication: Autologous haematopoietic stem cell transplant
  2. CARBOPLATIN [Suspect]
     Active Substance: CARBOPLATIN
     Indication: Autologous haematopoietic stem cell transplant
  3. ACETAMINOPHEN [Suspect]
     Active Substance: ACETAMINOPHEN
  4. DIPHENHYDRAMINE [Suspect]
     Active Substance: DIPHENHYDRAMINE
  5. MANNITOL [Suspect]
     Active Substance: MANNITOL
  6. HYDROCORTISONE [Suspect]
     Active Substance: HYDROCORTISONE
  7. ONDANSETRON [Suspect]
     Active Substance: ONDANSETRON
  8. OMEPRAZOLE [Suspect]
     Active Substance: OMEPRAZOLE
  9. LORAZEPAM [Suspect]
     Active Substance: LORAZEPAM

REACTIONS (1)
  - Toxic skin eruption [Recovered/Resolved]
